FAERS Safety Report 8495784-X (Version None)
Quarter: 2012Q3

REPORT INFORMATION
  Report Type: 
  Country: None (occurrence: None)
  Receive Date: 20120709
  Receipt Date: 20120628
  Transmission Date: 20120928
  Serious: Yes (Other)
  Sender: FDA-Public Use
  Company Number: US-ASTRAZENECA-2012SE43873

PATIENT
  Sex: Male

DRUGS (2)
  1. INTERMEZZO [Suspect]
     Dosage: (2) 1.75 MG
  2. SEROQUEL [Suspect]
     Dosage: TOOK WHOLE 30 DAY AMOUNT
     Route: 048

REACTIONS (1)
  - INTENTIONAL OVERDOSE [None]
